FAERS Safety Report 13945036 (Version 2)
Quarter: 2019Q1

REPORT INFORMATION
  Report Type: Spontaneous
  Country: NO (occurrence: NO)
  Receive Date: 20170907
  Receipt Date: 20190226
  Transmission Date: 20190417
  Serious: Yes (Disabling)
  Sender: FDA-Public Use
  Company Number: NO-009507513-1709NOR003226

PATIENT
  Age: 52 Year
  Sex: Male
  Weight: 78 kg

DRUGS (2)
  1. CALCIGRAN FORTE [Concomitant]
     Active Substance: CALCIUM CARBONATE\CHOLECALCIFEROL
     Dosage: UNK
     Dates: start: 20140104, end: 20141026
  2. FOSAMAX [Suspect]
     Active Substance: ALENDRONATE SODIUM
     Indication: NECROSIS
     Dosage: 70 MG, QW
     Route: 048
     Dates: start: 20140104, end: 20141026

REACTIONS (4)
  - Pain [Not Recovered/Not Resolved]
  - Bone density increased [Not Recovered/Not Resolved]
  - Device loosening [Unknown]
  - Fracture [Unknown]

NARRATIVE: CASE EVENT DATE: 20140104
